FAERS Safety Report 9637093 (Version 1)
Quarter: 2013Q4

REPORT INFORMATION
  Report Type: Spontaneous
  Country: US (occurrence: US)
  Receive Date: 20131022
  Receipt Date: 20131022
  Transmission Date: 20140711
  Serious: Yes (Other)
  Sender: FDA-Public Use
  Company Number: US-BRISTOL-MYERS SQUIBB COMPANY-19538412

PATIENT
  Age: 64 Year
  Sex: Male

DRUGS (4)
  1. BYDUREON [Suspect]
  2. METFORMIN [Concomitant]
  3. VYTORIN [Concomitant]
  4. TRICOR [Concomitant]

REACTIONS (1)
  - Pancreatitis [Unknown]
